FAERS Safety Report 18221587 (Version 1)
Quarter: 2020Q3

REPORT INFORMATION
  Report Type: Spontaneous
  Country: None (occurrence: US)
  Receive Date: 20200901
  Receipt Date: 20200901
  Transmission Date: 20201103
  Serious: Yes (Hospitalization)
  Sender: FDA-Public Use
  Company Number: None

PATIENT
  Age: 69 Year
  Sex: Male
  Weight: 88 kg

DRUGS (1)
  1. HYDROCHLOROTHIAZIDE (HYDROCHLOROTHIAZIDE 25MG TAB) [Suspect]
     Active Substance: HYDROCHLOROTHIAZIDE
     Route: 048

REACTIONS (2)
  - Hyponatraemia [None]
  - Blood pressure increased [None]

NARRATIVE: CASE EVENT DATE: 20200312
